FAERS Safety Report 8301253-X (Version None)
Quarter: 2012Q2

REPORT INFORMATION
  Report Type: 
  Country: None (occurrence: None)
  Receive Date: 20120420
  Receipt Date: 20120420
  Transmission Date: 20120825
  Serious: Yes (Disabling)
  Sender: FDA-Public Use
  Company Number: None

PATIENT
  Sex: Male
  Weight: 122.46 kg

DRUGS (1)
  1. CITALOPRAM HYDROBROMIDE [Suspect]
     Indication: MAJOR DEPRESSION
     Dosage: 40MG
     Route: 048
     Dates: start: 20110712, end: 20111010

REACTIONS (3)
  - CARDIAC FAILURE CONGESTIVE [None]
  - BRADYCARDIA [None]
  - ELECTROCARDIOGRAM QRS COMPLEX PROLONGED [None]
